FAERS Safety Report 16495553 (Version 1)
Quarter: 2019Q2

REPORT INFORMATION
  Report Type: Spontaneous
  Country: CA (occurrence: CA)
  Receive Date: 20190628
  Receipt Date: 20190628
  Transmission Date: 20190711
  Serious: Yes (Other)
  Sender: FDA-Public Use
  Company Number: CA-SAMSUNG BIOEPIS-SB-2019-16283

PATIENT
  Age: 57 Year
  Sex: Female

DRUGS (2)
  1. PREDNISONE. [Concomitant]
     Active Substance: PREDNISONE
     Indication: PRODUCT USED FOR UNKNOWN INDICATION
     Route: 048
  2. INFLIXIMAB [Suspect]
     Active Substance: INFLIXIMAB
     Indication: CROHN^S DISEASE
     Route: 042

REACTIONS (9)
  - Dry skin [Unknown]
  - Uveitis [Unknown]
  - Arthralgia [Unknown]
  - Alopecia [Unknown]
  - Anal fissure [Unknown]
  - Skin exfoliation [Unknown]
  - Wound [Unknown]
  - Aphthous ulcer [Unknown]
  - Impaired healing [Unknown]
